FAERS Safety Report 5297211-2 (Version None)
Quarter: 2007Q2

REPORT INFORMATION
  Report Type: 
  Country: None (occurrence: None)
  Receive Date: 20070416
  Receipt Date: 20070405
  Transmission Date: 20071010
  Serious: Yes (Hospitalization)
  Sender: FDA-Public Use
  Company Number: RU-JNJFOC-20070402085

PATIENT
  Sex: Female
  Weight: 60 kg

DRUGS (3)
  1. INFLIXIMAB [Suspect]
     Route: 042
  2. INFLIXIMAB [Suspect]
     Dosage: FIFTH INFUSION
     Route: 042
  3. INFLIXIMAB [Suspect]
     Indication: RHEUMATOID ARTHRITIS
     Dosage: 200 MG ACCORDING TO SCHEME 0,2,6 AND EACH 8 WEEKS
     Route: 042

REACTIONS (9)
  - BURNING SENSATION [None]
  - OESOPHAGEAL CANDIDIASIS [None]
  - PLEURAL EFFUSION [None]
  - PNEUMONIA [None]
  - RESPIRATORY FAILURE [None]
  - RESPIRATORY TRACT INFECTION VIRAL [None]
  - STOMACH DISCOMFORT [None]
  - VAGINAL BURNING SENSATION [None]
  - VAGINAL DISCHARGE [None]
